FAERS Safety Report 5418221-8 (Version None)
Quarter: 2007Q3

REPORT INFORMATION
  Report Type: 
  Country: None (occurrence: None)
  Receive Date: 20070817
  Receipt Date: 20070814
  Transmission Date: 20080115
  Serious: Yes (Hospitalization)
  Sender: FDA-Public Use
  Company Number: JP-ROCHE-510066

PATIENT
  Age: 56 Year
  Sex: Male

DRUGS (6)
  1. TICLOPIDINE HCL [Suspect]
     Indication: CORONARY ARTERIAL STENT INSERTION
     Dosage: ON 08-OCT-2006, THE PATIENT HAD STARTED TO RECEIVE TICLOPIDINE FOR A MONTH. NO NOTABLE ADVERSE REAC+
     Route: 048
  2. TICLOPIDINE HCL [Suspect]
     Dosage: INDICATION REPORTED AS CORONARY ARTERIAL STENT INSERTION/ANGINA PECTORIS.
     Route: 048
     Dates: start: 20070621, end: 20070706
  3. ASPIRIN [Concomitant]
     Dosage: GENERIC NAME REPORTED: ACETYLSALICYLIC ACID
     Route: 048
  4. BASEN [Concomitant]
     Route: 048
  5. SIGMART [Concomitant]
     Route: 048
  6. LIPITOR [Concomitant]
     Route: 048

REACTIONS (8)
  - BLOOD PRESSURE INCREASED [None]
  - CATHETER SITE ERYTHEMA [None]
  - HEADACHE [None]
  - HOT FLUSH [None]
  - PYREXIA [None]
  - RASH [None]
  - ULCER [None]
  - VENIPUNCTURE SITE SWELLING [None]
